FAERS Safety Report 25214717 (Version 3)
Quarter: 2025Q2

REPORT INFORMATION
  Report Type: Spontaneous
  Country: CA (occurrence: CA)
  Receive Date: 20250418
  Receipt Date: 20250509
  Transmission Date: 20250717
  Serious: Yes (Hospitalization, Other)
  Sender: ASTELLAS
  Company Number: CA-PFIZER INC-PV202500018537

PATIENT
  Age: 77 Year
  Sex: Male
  Weight: 109.6 kg

DRUGS (9)
  1. PADCEV [Suspect]
     Active Substance: ENFORTUMAB VEDOTIN-EJFV
     Indication: Product used for unknown indication
     Route: 042
     Dates: start: 20250205
  2. PADCEV [Suspect]
     Active Substance: ENFORTUMAB VEDOTIN-EJFV
     Route: 042
     Dates: start: 20250226
  3. PADCEV [Suspect]
     Active Substance: ENFORTUMAB VEDOTIN-EJFV
     Route: 042
     Dates: start: 20250305
  4. PADCEV [Suspect]
     Active Substance: ENFORTUMAB VEDOTIN-EJFV
     Route: 042
     Dates: start: 20250319
  5. PADCEV [Suspect]
     Active Substance: ENFORTUMAB VEDOTIN-EJFV
     Route: 042
     Dates: start: 20250319
  6. PADCEV [Suspect]
     Active Substance: ENFORTUMAB VEDOTIN-EJFV
     Route: 042
     Dates: start: 20250409
  7. KEYTRUDA [Concomitant]
     Active Substance: PEMBROLIZUMAB
     Indication: Product used for unknown indication
     Dosage: 200 MG EVERY 3 WEEKS, CYCLE3/ ONGOING
     Route: 042
  8. HYDROMORPHONE [Concomitant]
     Active Substance: HYDROMORPHONE
     Indication: Product used for unknown indication
     Route: 042
  9. OLANZAPINE [Concomitant]
     Active Substance: OLANZAPINE
     Indication: Product used for unknown indication
     Route: 048

REACTIONS (11)
  - Haemoglobin decreased [Recovering/Resolving]
  - Blood urine present [Recovered/Resolved]
  - Blood pressure systolic increased [Unknown]
  - Malignant neoplasm progression [Not Recovered/Not Resolved]
  - Fatigue [Unknown]
  - Dry mouth [Unknown]
  - Nausea [Not Recovered/Not Resolved]
  - Vomiting [Unknown]
  - Pain [Unknown]
  - Blood pressure diastolic decreased [Recovered/Resolved]
  - Inappropriate schedule of product administration [Unknown]

NARRATIVE: CASE EVENT DATE: 20250101
